FAERS Safety Report 5192940-3 (Version None)
Quarter: 2006Q4

REPORT INFORMATION
  Report Type: 
  Country: None (occurrence: None)
  Receive Date: 20061228
  Receipt Date: 20060308
  Transmission Date: 20070319
  Serious: No
  Sender: FDA-Public Use
  Company Number: US-GLAXOSMITHKLINE-A0596739A

PATIENT
  Age: 74 Year
  Sex: Female

DRUGS (7)
  1. FLONASE [Suspect]
     Dosage: 1SPR PER DAY
     Route: 045
  2. TOPROL-XL [Concomitant]
  3. HYDROXYZINE [Concomitant]
  4. ASPIRIN [Concomitant]
  5. TARTRAZINE [Concomitant]
  6. UNSPECIFIED MEDICATION [Concomitant]
  7. ATERAX [Concomitant]

REACTIONS (1)
  - EPISTAXIS [None]
